FAERS Safety Report 24455923 (Version 2)
Quarter: 2024Q4

REPORT INFORMATION
  Report Type: Report from Study
  Country: US (occurrence: US)
  Receive Date: 20241017
  Receipt Date: 20241018
  Transmission Date: 20250114
  Serious: No
  Sender: ROCHE
  Company Number: US-ROCHE-3488879

PATIENT
  Age: 65 Year
  Sex: Male

DRUGS (14)
  1. RITUXAN [Suspect]
     Active Substance: RITUXIMAB
     Indication: Haematuria
     Dosage: EVERY 6 MONTHS.
     Route: 041
     Dates: start: 20211102, end: 20220629
  2. RITUXAN [Suspect]
     Active Substance: RITUXIMAB
     Indication: Glomerulonephritis membranous
  3. CYTOXAN [Suspect]
     Active Substance: CYCLOPHOSPHAMIDE
     Indication: Haematuria
     Route: 065
  4. CYTOXAN [Suspect]
     Active Substance: CYCLOPHOSPHAMIDE
     Indication: Glomerulonephritis membranous
  5. ALBUTEROL SULFATE [Concomitant]
     Active Substance: ALBUTEROL SULFATE
  6. APIXABAN [Concomitant]
     Active Substance: APIXABAN
  7. ATORVASTATIN [Concomitant]
     Active Substance: ATORVASTATIN
  8. DOXAZOSIN [Concomitant]
     Active Substance: DOXAZOSIN\DOXAZOSIN MESYLATE
  9. EZETIMIBE [Concomitant]
     Active Substance: EZETIMIBE
  10. FLUTICASONE [Concomitant]
     Active Substance: FLUTICASONE
  11. FOSINOPRIL [Concomitant]
     Active Substance: FOSINOPRIL
  12. PREDNISONE [Concomitant]
     Active Substance: PREDNISONE
  13. TORSEMIDE [Concomitant]
     Active Substance: TORSEMIDE
  14. BACTRIM [Concomitant]
     Active Substance: SULFAMETHOXAZOLE\TRIMETHOPRIM

REACTIONS (2)
  - B-lymphocyte count decreased [Unknown]
  - Off label use [Unknown]

NARRATIVE: CASE EVENT DATE: 20211102
